FAERS Safety Report 6292097-1 (Version None)
Quarter: 2009Q3

REPORT INFORMATION
  Report Type: 
  Country: None (occurrence: None)
  Receive Date: 20090731
  Receipt Date: 20090722
  Transmission Date: 20100115
  Serious: Yes (Other)
  Sender: FDA-Public Use
  Company Number: CN-ELI_LILLY_AND_COMPANY-CN200907005319

PATIENT
  Sex: Male
  Weight: 77 kg

DRUGS (1)
  1. HUMULIN 70/30 [Suspect]
     Indication: DIABETES MELLITUS
     Dosage: 30 IU, DAILY (1/D)
     Route: 058
     Dates: start: 20090101

REACTIONS (2)
  - BLINDNESS TRANSIENT [None]
  - INJECTION SITE ERYTHEMA [None]
